FAERS Safety Report 9253925 (Version 1)
Quarter: 2013Q2

REPORT INFORMATION
  Report Type: Spontaneous
  Country: US (occurrence: None)
  Receive Date: 20130422
  Receipt Date: 20130422
  Transmission Date: 20140414
  Serious: Yes (Other)
  Sender: FDA-Public Use
  Company Number: None

PATIENT
  Age: 30 Year
  Sex: Female
  Weight: 82.56 kg

DRUGS (2)
  1. DESOGEN DESOGESTREL [Suspect]
     Indication: CONTRACEPTION
     Dates: start: 20060101, end: 20110528
  2. FRAGMIN [Concomitant]

REACTIONS (5)
  - Abdominal pain [None]
  - Splenic vein occlusion [None]
  - Mesenteric occlusion [None]
  - Portal vein occlusion [None]
  - Budd-Chiari syndrome [None]
